FAERS Safety Report 17939225 (Version 2)
Quarter: 2020Q3

REPORT INFORMATION
  Report Type: Spontaneous
  Country: AR (occurrence: AR)
  Receive Date: 20200624
  Receipt Date: 20200708
  Transmission Date: 20201103
  Serious: Yes (Hospitalization)
  Sender: FDA-Public Use
  Company Number: AR-VALIDUS PHARMACEUTICALS LLC-AR-2020VAL000529

PATIENT

DRUGS (4)
  1. SINTROM [Concomitant]
     Active Substance: ACENOCOUMAROL
     Indication: PRODUCT USED FOR UNKNOWN INDICATION
     Dosage: UNK
  2. LASIX [Suspect]
     Active Substance: FUROSEMIDE
     Indication: CARDIAC FAILURE
     Dosage: 40 MG, BID (1 TABLET OF 40 MG IN THE MORNING AND HALF TABLET OF)
     Route: 048
     Dates: start: 20170624
  3. LASIX [Suspect]
     Active Substance: FUROSEMIDE
     Indication: BLOOD CREATINE DECREASED
     Dosage: 20 ML, UNK
     Route: 042
  4. POTASSIUM [Concomitant]
     Active Substance: POTASSIUM
     Indication: PRODUCT USED FOR UNKNOWN INDICATION
     Dosage: UNK

REACTIONS (3)
  - Blood creatinine increased [Unknown]
  - Drug ineffective [Unknown]
  - Hospitalisation [Unknown]

NARRATIVE: CASE EVENT DATE: 20200511
